FAERS Safety Report 6293323-5 (Version None)
Quarter: 2009Q3

REPORT INFORMATION
  Report Type: 
  Country: None (occurrence: None)
  Receive Date: 20090731
  Receipt Date: 20090729
  Transmission Date: 20100115
  Serious: Yes (Other)
  Sender: FDA-Public Use
  Company Number: IT-VALEANT-2009VX001345

PATIENT
  Age: 60 Year
  Sex: Female

DRUGS (7)
  1. TASMAR [Suspect]
     Route: 048
     Dates: start: 20090607, end: 20090622
  2. SINEMET [Concomitant]
     Dosage: DOSE UNIT:
     Route: 065
  3. ARTANE [Concomitant]
     Route: 065
  4. XANAX [Concomitant]
     Route: 065
  5. TRITTICO [Concomitant]
     Route: 065
  6. VENLAFAXINE HYDROCHLORIDE [Concomitant]
     Route: 065
  7. MIRAPEX [Concomitant]
     Route: 065

REACTIONS (3)
  - DYSKINESIA [None]
  - HEPATIC FUNCTION ABNORMAL [None]
  - RHABDOMYOLYSIS [None]
